FAERS Safety Report 23192173 (Version 1)
Quarter: 2023Q4

REPORT INFORMATION
  Report Type: Spontaneous
  Country: AU (occurrence: AU)
  Receive Date: 20231116
  Receipt Date: 20231116
  Transmission Date: 20240110
  Serious: Yes (Other)
  Sender: FDA-Public Use
  Company Number: AU-ORGANON-O2310AUS002828

PATIENT
  Sex: Female

DRUGS (2)
  1. ETONOGESTREL [Suspect]
     Active Substance: ETONOGESTREL
     Dosage: 1 IMPLANT
     Route: 059
     Dates: start: 2019
  2. ETONOGESTREL [Suspect]
     Active Substance: ETONOGESTREL
     Dosage: 1 IMPLANT IN OTHER ARM
     Route: 059
     Dates: start: 2023

REACTIONS (6)
  - Device dislocation [Not Recovered/Not Resolved]
  - Incorrect product administration duration [Unknown]
  - Wrong technique in product usage process [Unknown]
  - Overdose [Unknown]
  - Device placement issue [Not Recovered/Not Resolved]
  - Device use issue [Unknown]

NARRATIVE: CASE EVENT DATE: 20220101
